FAERS Safety Report 23783481 (Version 1)
Quarter: 2024Q2

REPORT INFORMATION
  Report Type: Spontaneous
  Country: NZ (occurrence: None)
  Receive Date: 20240425
  Receipt Date: 20240425
  Transmission Date: 20240715
  Serious: Yes (Other)
  Sender: FDA-Public Use
  Company Number: 2024A092356

PATIENT
  Age: 57 Year
  Sex: Male

DRUGS (4)
  1. IMFINZI [Suspect]
     Active Substance: DURVALUMAB
  2. OMEPRAZOLE [Concomitant]
     Active Substance: OMEPRAZOLE
  3. ETOPOSIDE [Concomitant]
     Active Substance: ETOPOSIDE
  4. CISPLATIN [Concomitant]
     Active Substance: CISPLATIN

REACTIONS (1)
  - Disease progression [Unknown]
